FAERS Safety Report 16747762 (Version 1)
Quarter: 2019Q3

REPORT INFORMATION
  Report Type: Spontaneous
  Country: GB (occurrence: GB)
  Receive Date: 20190827
  Receipt Date: 20190827
  Transmission Date: 20191005
  Serious: Yes (Hospitalization, Other)
  Sender: FDA-Public Use
  Company Number: PHHY2019GB195442

PATIENT
  Sex: Female

DRUGS (3)
  1. GLATIRAMER [Suspect]
     Active Substance: GLATIRAMER
     Indication: MULTIPLE SCLEROSIS
     Dosage: 120 MG, QW (40 MILLIGRAM, 3XW)
     Route: 058
     Dates: start: 20190329
  2. GABAPENTIN. [Suspect]
     Active Substance: GABAPENTIN
     Indication: PRODUCT USED FOR UNKNOWN INDICATION
     Dosage: UNK
     Route: 065
  3. TRAMADOL. [Suspect]
     Active Substance: TRAMADOL
     Indication: PRODUCT USED FOR UNKNOWN INDICATION
     Dosage: UNK
     Route: 065

REACTIONS (8)
  - Injection site bruising [Unknown]
  - Spinal pain [Unknown]
  - Product dose omission [Unknown]
  - Hangover [Unknown]
  - Anxiety [Unknown]
  - Fatigue [Unknown]
  - Paraesthesia [Unknown]
  - Multiple sclerosis relapse [Unknown]
